FAERS Safety Report 16006818 (Version 1)
Quarter: 2019Q1

REPORT INFORMATION
  Report Type: Spontaneous
  Country: BG (occurrence: BG)
  Receive Date: 20190222
  Receipt Date: 20190222
  Transmission Date: 20190418
  Serious: Yes (Death)
  Sender: FDA-Public Use
  Company Number: BG-ASTRAZENECA-2019SE28159

PATIENT
  Age: 63 Year
  Sex: Female

DRUGS (12)
  1. PRESTARIUM CO [Concomitant]
     Dosage: 10/5 MG IN THE EVENINGS
  2. TERTENSIF SR [Concomitant]
     Active Substance: INDAPAMIDE
     Dosage: 1 TABLET IN THE MORNINGS
  3. ATORVASTATIN [Concomitant]
     Active Substance: ATORVASTATIN
     Dosage: 40 MG IN THE EVENINGS
  4. ASPIRIN PROTECT [Concomitant]
     Active Substance: ASPIRIN
     Dosage: 100 MG - FOR NO LESS THAN 12 MONTHS
  5. HEPARIN [Concomitant]
     Active Substance: HEPARIN SODIUM
     Dosage: 1 VIAL
  6. BRILIQUE [Suspect]
     Active Substance: TICAGRELOR
     Indication: ACUTE MYOCARDIAL INFARCTION
     Route: 048
     Dates: start: 201901
  7. TRITACE [Concomitant]
     Active Substance: RAMIPRIL
  8. ULTRAVIST [Concomitant]
     Active Substance: IOPROMIDE
     Dosage: 1 VIAL
  9. NITRONAL [Concomitant]
     Active Substance: NITROGLYCERIN
  10. LECALPIN [Concomitant]
  11. LIDOCAINE. [Concomitant]
     Active Substance: LIDOCAINE
     Dosage: 1 AMPOULE
  12. TINTAROS [Concomitant]
     Active Substance: ROSUVASTATIN CALCIUM

REACTIONS (1)
  - Haemorrhagic stroke [Fatal]

NARRATIVE: CASE EVENT DATE: 201902
